FAERS Safety Report 16238920 (Version 3)
Quarter: 2019Q2

REPORT INFORMATION
  Report Type: Spontaneous
  Country: GB (occurrence: GB)
  Receive Date: 20190425
  Receipt Date: 20190528
  Transmission Date: 20190711
  Serious: Yes (Other)
  Sender: FDA-Public Use
  Company Number: GB-JNJFOC-20190433887

PATIENT
  Sex: Female

DRUGS (13)
  1. METOJECT PEN [Suspect]
     Active Substance: METHOTREXATE
     Indication: DRUG INEFFECTIVE
     Route: 058
  2. METOJECT PEN [Suspect]
     Active Substance: METHOTREXATE
     Indication: PSORIASIS
     Route: 058
  3. METOJECT PEN [Suspect]
     Active Substance: METHOTREXATE
     Indication: ARTHRITIS
     Route: 058
  4. METOJECT PEN [Suspect]
     Active Substance: METHOTREXATE
     Indication: ARTHRITIS
     Route: 058
  5. METOJECT PEN [Suspect]
     Active Substance: METHOTREXATE
     Indication: PSORIASIS
     Route: 058
  6. METOJECT PEN [Suspect]
     Active Substance: METHOTREXATE
     Indication: ARTHRITIS
     Route: 058
  7. SIMPONI [Suspect]
     Active Substance: GOLIMUMAB
     Indication: PRODUCT USED FOR UNKNOWN INDICATION
     Route: 058
  8. METOJECT PEN [Suspect]
     Active Substance: METHOTREXATE
     Indication: DRUG INEFFECTIVE
     Route: 058
  9. METOJECT PEN [Suspect]
     Active Substance: METHOTREXATE
     Indication: PSORIASIS
     Route: 058
  10. METOJECT PEN [Suspect]
     Active Substance: METHOTREXATE
     Indication: ARTHRITIS
     Route: 058
  11. METOJECT PEN [Suspect]
     Active Substance: METHOTREXATE
     Indication: PSORIASIS
     Route: 058
  12. METOJECT PEN [Suspect]
     Active Substance: METHOTREXATE
     Indication: DRUG INEFFECTIVE
     Route: 058
  13. METOJECT PEN [Suspect]
     Active Substance: METHOTREXATE
     Indication: DRUG INEFFECTIVE
     Route: 058

REACTIONS (4)
  - Paraesthesia [Recovered/Resolved]
  - Cerebrovascular accident [Unknown]
  - Hypoaesthesia [Recovered/Resolved]
  - Hypoaesthesia oral [Recovered/Resolved]
